FAERS Safety Report 9454872 (Version 1)
Quarter: 2013Q3

REPORT INFORMATION
  Report Type: Report from Study
  Country: DE (occurrence: DE)
  Receive Date: 20130813
  Receipt Date: 20130813
  Transmission Date: 20140515
  Serious: Yes (Hospitalization)
  Sender: FDA-Public Use
  Company Number: DE-ROCHE-1258822

PATIENT
  Sex: Male

DRUGS (10)
  1. TOCILIZUMAB [Suspect]
     Indication: RHEUMATOID ARTHRITIS
     Route: 065
     Dates: start: 201106, end: 20120702
  2. METHOTREXATE [Suspect]
     Indication: RHEUMATOID ARTHRITIS
     Route: 051
     Dates: start: 200901, end: 20120713
  3. METHOTREXATE [Suspect]
     Route: 051
     Dates: start: 20120917
  4. ASS100 [Concomitant]
     Route: 065
     Dates: start: 2008
  5. CODIOVAN [Concomitant]
     Route: 065
     Dates: start: 2008
  6. OMEPRAZOL [Concomitant]
     Route: 065
     Dates: start: 2008
  7. BISOPROLOL [Concomitant]
     Route: 065
     Dates: start: 2008
  8. TAMSULOSIN [Concomitant]
     Route: 065
     Dates: start: 2008
  9. PREDNISOLON [Concomitant]
     Route: 065
     Dates: start: 201204
  10. IBUPROFEN [Concomitant]
     Route: 065
     Dates: start: 201112

REACTIONS (1)
  - Prostatitis [Recovered/Resolved]
